FAERS Safety Report 6467315-7 (Version None)
Quarter: 2009Q4

REPORT INFORMATION
  Report Type: 
  Country: None (occurrence: None)
  Receive Date: 20091202
  Receipt Date: 20091125
  Transmission Date: 20100525
  Serious: Yes (Other)
  Sender: FDA-Public Use
  Company Number: US-ELI_LILLY_AND_COMPANY-US200911006638

PATIENT
  Sex: Male

DRUGS (10)
  1. HUMALOG [Suspect]
     Indication: DIABETES MELLITUS
     Dosage: 12 U, 3/D
  2. HUMALOG [Suspect]
     Dosage: UNK, AS NEEDED
  3. PROGRAF [Concomitant]
  4. CELLCEPT [Concomitant]
  5. BACTRIM [Concomitant]
  6. LISINOPRIL [Concomitant]
  7. LANTUS [Concomitant]
  8. FOLIC ACID [Concomitant]
  9. PREVACID [Concomitant]
  10. COUMADIN [Concomitant]

REACTIONS (6)
  - DRUG DOSE OMISSION [None]
  - HYPOAESTHESIA [None]
  - LETHARGY [None]
  - LIVER TRANSPLANT [None]
  - MALAISE [None]
  - TUMOUR MARKER INCREASED [None]
